FAERS Safety Report 4312632-X (Version None)
Quarter: 2004Q1

REPORT INFORMATION
  Report Type: 
  Country: None (occurrence: None)
  Receive Date: 20040305
  Receipt Date: 20030407
  Transmission Date: 20041129
  Serious: Yes (Hospitalization)
  Sender: FDA-Public Use
  Company Number: WAES 0304USA00867

PATIENT
  Age: 65 Year
  Sex: Male
  Weight: 99 kg

DRUGS (5)
  1. VICODIN [Concomitant]
     Indication: ARTHRALGIA
     Dates: start: 20001113, end: 20010301
  2. VICODIN [Concomitant]
     Indication: BACK PAIN
     Dates: start: 20001113, end: 20010301
  3. DARVOCET-N 100 [Concomitant]
     Dates: start: 20010131
  4. VIOXX [Suspect]
     Indication: ARTHRALGIA
     Route: 048
     Dates: start: 20010308, end: 20010622
  5. VIOXX [Suspect]
     Indication: BACK PAIN
     Route: 048
     Dates: start: 20010308, end: 20010622

REACTIONS (27)
  - ADVERSE EVENT [None]
  - ALOPECIA [None]
  - BLOOD BILIRUBIN INCREASED [None]
  - BLOOD CHOLESTEROL INCREASED [None]
  - BLOOD TRIGLYCERIDES INCREASED [None]
  - CARDIAC ANEURYSM [None]
  - CARDIAC FAILURE CONGESTIVE [None]
  - COLONIC PSEUDO-OBSTRUCTION [None]
  - CONGESTIVE CARDIOMYOPATHY [None]
  - CORONARY ARTERY DISEASE [None]
  - CORONARY ARTERY SURGERY [None]
  - DYSPNOEA [None]
  - EAR HAEMORRHAGE [None]
  - EAR PAIN [None]
  - EJECTION FRACTION DECREASED [None]
  - ILEUS [None]
  - INJURY [None]
  - ISCHAEMIC CARDIOMYOPATHY [None]
  - MYOCARDIAL INFARCTION [None]
  - MYOCARDIAL ISCHAEMIA [None]
  - OEDEMA PERIPHERAL [None]
  - PHARYNGITIS [None]
  - SEBORRHOEIC KERATOSIS [None]
  - SKIN PAPILLOMA [None]
  - VENTRICULAR DYSFUNCTION [None]
  - VENTRICULAR TACHYCARDIA [None]
  - WHITE BLOOD CELL COUNT INCREASED [None]
